FAERS Safety Report 6312164-3 (Version None)
Quarter: 2009Q3

REPORT INFORMATION
  Report Type: 
  Country: None (occurrence: None)
  Receive Date: 20090813
  Receipt Date: 20090813
  Transmission Date: 20100115
  Serious: Yes (Other)
  Sender: FDA-Public Use
  Company Number: None

PATIENT
  Sex: Male
  Weight: 73.0291 kg

DRUGS (2)
  1. PEG-INTRON [Suspect]
     Indication: HEPATITIS C
     Dosage: 120 MCG/0.5 ML ONCE Q WEEK SQ
     Route: 058
     Dates: start: 20090808, end: 20090812
  2. RIBAPAK 600-400MG ZYDUS [Suspect]
     Indication: HEPATITIS C
     Dosage: 1000MG/DAY DAILY PO
     Route: 048
     Dates: start: 20090808, end: 20090812

REACTIONS (1)
  - ILL-DEFINED DISORDER [None]
